FAERS Safety Report 8830461 (Version 2)
Quarter: 2012Q4

REPORT INFORMATION
  Report Type: 
  Country: JP (occurrence: JP)
  Receive Date: 20121009
  Receipt Date: 20121231
  Transmission Date: 20130627
  Serious: Yes (Hospitalization, Disabling)
  Sender: FDA-Public Use
  Company Number: JP-009507513-2011SP035181

PATIENT
  Age: 80 Year
  Sex: Female

DRUGS (8)
  1. DIAZOXIDE [Suspect]
     Indication: HYPOGLYCAEMIA
     Dosage: 50 mg, TID
     Route: 048
     Dates: start: 20110615, end: 20110628
  2. MUCOSTA [Concomitant]
     Indication: POST-TRAUMATIC PAIN
     Dosage: 100 mg, qd, Divided dose frequency unknown
     Route: 065
  3. MUCOSTA [Concomitant]
     Indication: GASTRITIS
  4. CELECOX [Concomitant]
     Indication: POST-TRAUMATIC PAIN
     Dosage: 200 mg, qd, Divided dose frequency unknown
     Route: 065
  5. KALIMATE [Concomitant]
     Indication: RENAL FAILURE CHRONIC
     Dosage: 10.8 g, qd, Divided dose frequency unknown
     Route: 048
     Dates: start: 20110511
  6. THYRADIN-S [Concomitant]
     Indication: HYPOTHYROIDISM
     Dosage: 50 Microgram, qd, Divided dose frequency unknown
     Route: 048
  7. SODIUM CHLORIDE [Concomitant]
     Indication: RENAL FAILURE CHRONIC
     Dosage: 3 g, qd, Divided dose frequency unknown
     Route: 065
  8. LUPRAC [Concomitant]
     Indication: RENAL FAILURE CHRONIC
     Dosage: 8 mg, qd, Divided dose frequency unknown
     Route: 048

REACTIONS (2)
  - Oedema peripheral [Recovered/Resolved]
  - Renal impairment [Recovering/Resolving]
